FAERS Safety Report 19362677 (Version 2)
Quarter: 2021Q2

REPORT INFORMATION
  Report Type: Spontaneous
  Country: CH (occurrence: CH)
  Receive Date: 20210602
  Receipt Date: 20210613
  Transmission Date: 20210717
  Serious: Yes (Death, Other)
  Sender: FDA-Public Use
  Company Number: CH-INDIVIOR EUROPE LIMITED-INDV-129853-2021

PATIENT

DRUGS (15)
  1. HYDROMORPHONI HYDROCHLORIDUM STREULI [Suspect]
     Active Substance: HYDROMORPHONE HYDROCHLORIDE
     Indication: PAIN
     Dosage: 3 MILLIGRAM ( ORAL DROPS, 1X PER DAY TO MAX 3X PER DAY)
     Route: 048
     Dates: start: 20210304, end: 20210320
  2. PALLADON [Suspect]
     Active Substance: HYDROMORPHONE
     Indication: PAIN
     Dosage: 4 MILLIGRAM, BID (PALLADON? RETARD)
     Route: 065
     Dates: start: 20210310, end: 20210319
  3. NOVALGIN (METAMIZOLE SODIUM) [Concomitant]
     Active Substance: METAMIZOLE SODIUM
     Indication: PRODUCT USED FOR UNKNOWN INDICATION
     Dosage: UNK
     Route: 065
  4. ONDANSETRON LABATEC [Concomitant]
     Active Substance: ONDANSETRON
     Indication: PRODUCT USED FOR UNKNOWN INDICATION
     Dosage: UNK
     Route: 065
  5. SAROTEN [Concomitant]
     Active Substance: AMITRIPTYLINE
     Indication: PRODUCT USED FOR UNKNOWN INDICATION
     Dosage: UNK
     Route: 065
  6. PASPERTIN [METOCLOPRAMIDE HYDROCHLORIDE] [Concomitant]
     Active Substance: METOCLOPRAMIDE HYDROCHLORIDE
     Indication: PRODUCT USED FOR UNKNOWN INDICATION
     Dosage: UNK
     Route: 065
  7. TEMGESIC 0.2 MG TABLET [Suspect]
     Active Substance: BUPRENORPHINE HYDROCHLORIDE
     Indication: PAIN
     Dosage: 0.2 MILLIGRAM
     Route: 048
     Dates: start: 20210322
  8. KEFZOL [Concomitant]
     Active Substance: CEFAZOLIN SODIUM
     Indication: PRODUCT USED FOR UNKNOWN INDICATION
     Dosage: UNK
     Route: 065
  9. FRAGMIN [Concomitant]
     Active Substance: DALTEPARIN SODIUM
     Indication: PRODUCT USED FOR UNKNOWN INDICATION
     Dosage: UNK
     Route: 065
  10. PALLADON [Suspect]
     Active Substance: HYDROMORPHONE
     Dosage: 1 MILLIGRAM, ONE TIME DOSE
     Route: 065
     Dates: start: 20210320, end: 20210321
  11. KONAKION [Concomitant]
     Active Substance: PHYTONADIONE
     Indication: PRODUCT USED FOR UNKNOWN INDICATION
     Dosage: UNK
     Route: 065
  12. LANTUS [Concomitant]
     Active Substance: INSULIN GLARGINE
     Indication: PRODUCT USED FOR UNKNOWN INDICATION
     Dosage: UNK
     Route: 065
  13. PANTOZOL [Concomitant]
     Active Substance: PANTOPRAZOLE SODIUM
     Indication: PRODUCT USED FOR UNKNOWN INDICATION
     Dosage: UNK
     Route: 065
  14. PALLADON [Suspect]
     Active Substance: HYDROMORPHONE
     Dosage: 0.2 MILLIGRAM (INJECTED TWICE)
     Route: 065
     Dates: start: 20210319
  15. ROPIVACAINE. [Concomitant]
     Active Substance: ROPIVACAINE HYDROCHLORIDE
     Indication: PRODUCT USED FOR UNKNOWN INDICATION
     Dosage: UNK

REACTIONS (3)
  - Toxicity to various agents [Fatal]
  - Product use issue [Recovered/Resolved]
  - Acute respiratory failure [Fatal]

NARRATIVE: CASE EVENT DATE: 202103
